FAERS Safety Report 11718141 (Version 1)
Quarter: 2015Q4

REPORT INFORMATION
  Report Type: Spontaneous
  Country: US (occurrence: None)
  Receive Date: 20151109
  Receipt Date: 20151109
  Transmission Date: 20160304
  Serious: Yes (Other)
  Sender: FDA-Public Use
  Company Number: None

PATIENT
  Age: 44 Year
  Sex: Female

DRUGS (1)
  1. MYCOPHENOLATE 500MG [Suspect]
     Active Substance: MYCOPHENOLIC ACID

REACTIONS (4)
  - Diarrhoea [None]
  - Nausea [None]
  - Swelling [None]
  - Malaise [None]

NARRATIVE: CASE EVENT DATE: 20151106
